FAERS Safety Report 9400382 (Version 1)
Quarter: 2013Q3

REPORT INFORMATION
  Report Type: Spontaneous
  Country: IT (occurrence: IT)
  Receive Date: 20130711
  Receipt Date: 20130711
  Transmission Date: 20140515
  Serious: Yes (Other)
  Sender: FDA-Public Use
  Company Number: FK201302374

PATIENT
  Age: 64 Year
  Sex: Male

DRUGS (8)
  1. METHYLPREDNISOLONE [Suspect]
     Indication: COLITIS
     Route: 042
  2. CLOPIDOGREL (CLOPIDOGREL) [Concomitant]
  3. AZATHIOPRINE (AZATHIOPRINE) [Concomitant]
  4. ALBUMIN (ALBUMIN) [Concomitant]
  5. IRON (IRON) [Concomitant]
  6. FOLIC ACID (FOLIC ACID) [Concomitant]
  7. POTASSIUM (POTASSIUM) [Concomitant]
  8. INSULIN (INSULIN) [Concomitant]

REACTIONS (5)
  - Cytomegalovirus infection [None]
  - Haemoglobin decreased [None]
  - Pseudopolyposis [None]
  - Cytomegalovirus viraemia [None]
  - Colitis ulcerative [None]
